FAERS Safety Report 16091678 (Version 1)
Quarter: 2019Q1

REPORT INFORMATION
  Report Type: Spontaneous
  Country: ES (occurrence: ES)
  Receive Date: 20190319
  Receipt Date: 20190319
  Transmission Date: 20190418
  Serious: Yes (Death, Other)
  Sender: FDA-Public Use
  Company Number: ES-BAYER-2019-022416

PATIENT
  Age: 39 Year
  Sex: Male

DRUGS (1)
  1. STIVARGA [Suspect]
     Active Substance: REGORAFENIB
     Dosage: DAILY DOSE 120 MG
     Route: 048
     Dates: start: 201504, end: 201602

REACTIONS (12)
  - Rectal discharge [None]
  - Dyspnoea [None]
  - Tachycardia [None]
  - Disease progression [None]
  - Subileus [None]
  - Pulmonary embolism [None]
  - Nodule [None]
  - Death [Fatal]
  - Lymphangitis [None]
  - Palmar-plantar erythrodysaesthesia syndrome [None]
  - Lymphadenopathy [None]
  - Performance status decreased [None]

NARRATIVE: CASE EVENT DATE: 201508
